FAERS Safety Report 5178388-6 (Version None)
Quarter: 2006Q4

REPORT INFORMATION
  Report Type: 
  Country: None (occurrence: None)
  Receive Date: 20061218
  Receipt Date: 20060823
  Transmission Date: 20070319
  Serious: No
  Sender: FDA-Public Use
  Company Number: US-AMGEN-KDL191108

PATIENT
  Sex: Female

DRUGS (2)
  1. ENBREL [Suspect]
     Indication: RHEUMATOID ARTHRITIS
     Route: 058
     Dates: start: 20060703
  2. ENBREL [Suspect]
     Indication: SCLERODERMA

REACTIONS (4)
  - ABDOMINAL DISTENSION [None]
  - CONDITION AGGRAVATED [None]
  - INJECTION SITE PAIN [None]
  - RHEUMATOID ARTHRITIS [None]
